FAERS Safety Report 17598898 (Version 1)
Quarter: 2020Q1

REPORT INFORMATION
  Report Type: Spontaneous
  Country: US (occurrence: US)
  Receive Date: 20200330
  Receipt Date: 20200330
  Transmission Date: 20200409
  Serious: Yes (Death, Hospitalization, Other)
  Sender: FDA-Public Use
  Company Number: US-ASTELLAS-2020US011082

PATIENT
  Sex: Female

DRUGS (1)
  1. PADCEV [Suspect]
     Active Substance: ENFORTUMAB VEDOTIN-EJFV
     Indication: GALLBLADDER CANCER METASTATIC
     Dosage: 89.1 MG, EVERY 3 WEEKS (DAYS 1,8,15)
     Route: 042
     Dates: start: 20200211

REACTIONS (1)
  - Hepatic failure [Fatal]
